FAERS Safety Report 4841900-8 (Version None)
Quarter: 2005Q4

REPORT INFORMATION
  Report Type: 
  Country: None (occurrence: None)
  Receive Date: 20051130
  Receipt Date: 20050928
  Transmission Date: 20060501
  Serious: No
  Sender: FDA-Public Use
  Company Number: US-GLAXOSMITHKLINE-A0576211A

PATIENT
  Age: 55 Year
  Sex: Male

DRUGS (3)
  1. WELLBUTRIN XL [Suspect]
     Indication: BACK PAIN
     Dosage: 300MG PER DAY
     Route: 048
     Dates: start: 20050919
  2. RESTORIL [Concomitant]
  3. LAMISIL [Concomitant]

REACTIONS (5)
  - DIZZINESS [None]
  - DRUG ADMINISTRATION ERROR [None]
  - NAUSEA [None]
  - PARAESTHESIA [None]
  - SLEEP DISORDER [None]
